FAERS Safety Report 11934753 (Version 1)
Quarter: 2016Q1

REPORT INFORMATION
  Report Type: Spontaneous
  Country: US (occurrence: None)
  Receive Date: 20160120
  Receipt Date: 20160120
  Transmission Date: 20160526
  Serious: Yes (Other)
  Sender: FDA-Public Use
  Company Number: None

PATIENT
  Sex: Female
  Weight: 77.11 kg

DRUGS (5)
  1. FLUDROCORTISONE 0.1MG IMPAX (GLOBAL) [Suspect]
     Active Substance: FLUDROCORTISONE
     Indication: BLOOD ALDOSTERONE DECREASED
     Dosage: 1/2 TABLET  TWICE DAILY TAKEN BY MOUTH
     Dates: start: 20151207, end: 20160111
  2. UNITHROID [Concomitant]
     Active Substance: LEVOTHYROXINE SODIUM
  3. FLUDROCORTISONE 0.1MG IMPAX (GLOBAL) [Suspect]
     Active Substance: FLUDROCORTISONE
     Indication: DIZZINESS
     Dosage: 1/2 TABLET  TWICE DAILY TAKEN BY MOUTH
     Dates: start: 20151207, end: 20160111
  4. NP THYROID [Concomitant]
     Active Substance: LEVOTHYROXINE\LIOTHYRONINE
  5. FLUDROCORTISONE 0.1MG IMPAX (GLOBAL) [Suspect]
     Active Substance: FLUDROCORTISONE
     Indication: HYPOTENSION
     Dosage: 1/2 TABLET  TWICE DAILY TAKEN BY MOUTH
     Dates: start: 20151207, end: 20160111

REACTIONS (12)
  - Constipation [None]
  - Hypotension [None]
  - Skin fissures [None]
  - Alopecia [None]
  - Skin haemorrhage [None]
  - Drug ineffective [None]
  - Condition aggravated [None]
  - Product substitution issue [None]
  - Oropharyngeal pain [None]
  - Dizziness [None]
  - Fungal infection [None]
  - Acne [None]

NARRATIVE: CASE EVENT DATE: 20151207
